FAERS Safety Report 6702992-4 (Version None)
Quarter: 2010Q2

REPORT INFORMATION
  Report Type: 
  Country: None (occurrence: None)
  Receive Date: 20100429
  Receipt Date: 20100429
  Transmission Date: 20101027
  Serious: Yes (Other)
  Sender: FDA-Public Use
  Company Number: None

PATIENT
  Sex: Female
  Weight: 129 kg

DRUGS (2)
  1. TEMOZOLOMIDE [Suspect]
     Indication: NEOPLASM
     Dosage: 150MG/M2 5 DAYS
     Dates: start: 20100419
  2. METHOXYAMINE [Suspect]
     Indication: NEOPLASM
     Dosage: 15 MG/M2 IV OVER 1 HOURS
     Route: 042
     Dates: start: 20100419

REACTIONS (2)
  - DRUG HYPERSENSITIVITY [None]
  - INFUSION RELATED REACTION [None]
